FAERS Safety Report 8137851-6 (Version None)
Quarter: 2012Q1

REPORT INFORMATION
  Report Type: 
  Country: None (occurrence: None)
  Receive Date: 20120215
  Receipt Date: 20120208
  Transmission Date: 20120608
  Serious: Yes (Hospitalization)
  Sender: FDA-Public Use
  Company Number: JP-BRISTOL-MYERS SQUIBB COMPANY-16284879

PATIENT
  Age: 84 Year
  Sex: Male

DRUGS (11)
  1. ASPIRIN [Concomitant]
     Indication: ANGINA PECTORIS
     Route: 048
  2. OMNIPAQUE 140 [Suspect]
     Indication: ANGIOGRAM
     Dates: start: 20111125, end: 20111125
  3. ALLOPURINOL [Concomitant]
     Indication: HYPERURICAEMIA
     Route: 048
  4. LIPITOR [Concomitant]
     Indication: DYSLIPIDAEMIA
     Route: 048
  5. METFORMIN HCL [Suspect]
     Indication: DIABETES MELLITUS
     Route: 048
     Dates: end: 20111130
  6. ADALAT CC [Concomitant]
     Indication: HYPERTENSION
     Route: 048
  7. SOLITA-T [Concomitant]
     Indication: NEPHROPATHY
     Dates: start: 20111124, end: 20111125
  8. LANSOPRAZOLE [Concomitant]
     Indication: PROPHYLAXIS
     Route: 048
  9. CARVEDILOL [Concomitant]
     Indication: ANGINA PECTORIS
     Route: 048
  10. MAGMITT [Concomitant]
     Indication: CONSTIPATION
     Route: 048
  11. KREMEZIN [Concomitant]
     Indication: DIABETIC NEPHROPATHY
     Route: 048

REACTIONS (2)
  - NAUSEA [None]
  - RENAL FAILURE [None]
